FAERS Safety Report 11867664 (Version 2)
Quarter: 2016Q2

REPORT INFORMATION
  Report Type: Spontaneous
  Country: CH (occurrence: CH)
  Receive Date: 20151224
  Receipt Date: 20160405
  Transmission Date: 20160815
  Serious: Yes (Hospitalization)
  Sender: FDA-Public Use
  Company Number: CH-JNJFOC-20151219885

PATIENT
  Age: 76 Year
  Sex: Male

DRUGS (9)
  1. METOPROLOL SUCCINATE. [Concomitant]
     Active Substance: METOPROLOL SUCCINATE
     Route: 065
  2. COSAAR [Concomitant]
     Active Substance: LOSARTAN POTASSIUM
     Route: 065
     Dates: end: 201511
  3. XARELTO [Suspect]
     Active Substance: RIVAROXABAN
     Indication: CEREBROVASCULAR ACCIDENT PROPHYLAXIS
     Route: 048
     Dates: start: 20151113, end: 20151120
  4. XARELTO [Suspect]
     Active Substance: RIVAROXABAN
     Indication: ATRIAL FIBRILLATION
     Route: 048
     Dates: start: 20151113, end: 20151120
  5. NEURONTIN [Concomitant]
     Active Substance: GABAPENTIN
     Route: 065
  6. ALDACTONE A [Concomitant]
     Active Substance: SPIRONOLACTONE
     Route: 065
  7. HYGROTON [Concomitant]
     Active Substance: CHLORTHALIDONE
     Route: 065
     Dates: start: 2013, end: 201511
  8. ATORVASTATIN [Concomitant]
     Active Substance: ATORVASTATIN
     Route: 065
  9. MINALGIN [Suspect]
     Active Substance: METAMIZOLE
     Indication: PAIN IN EXTREMITY
     Route: 048
     Dates: start: 20151014, end: 20151120

REACTIONS (2)
  - Bacterial sepsis [Recovered/Resolved]
  - Agranulocytosis [Not Recovered/Not Resolved]

NARRATIVE: CASE EVENT DATE: 20151120
